FAERS Safety Report 17166176 (Version 1)
Quarter: 2019Q4

REPORT INFORMATION
  Report Type: Spontaneous
  Country: US (occurrence: US)
  Receive Date: 20191217
  Receipt Date: 20191217
  Transmission Date: 20200122
  Serious: Yes (Disabling)
  Sender: FDA-Public Use
  Company Number: None

PATIENT
  Age: 67 Year
  Sex: Female
  Weight: 80.55 kg

DRUGS (16)
  1. SYNTHROID [Concomitant]
     Active Substance: LEVOTHYROXINE SODIUM
  2. AMITRIPTILINE [Concomitant]
  3. OMEGA 3 OILS [Concomitant]
  4. METHYFOLATE 1000MCG [Concomitant]
  5. VITAMIN E 100UI [Concomitant]
  6. RESTASIS [Suspect]
     Active Substance: CYCLOSPORINE
     Indication: DRY EYE
     Dosage: ?          QUANTITY:1 VIAL;?
     Route: 047
     Dates: start: 20190724, end: 20191126
  7. LISINOPRIL. [Concomitant]
     Active Substance: LISINOPRIL
  8. VITAMIN D3 5000MG [Concomitant]
  9. THERATEARS [Concomitant]
     Active Substance: CARBOXYMETHYLCELLULOSE SODIUM
  10. HYDROCHLOROTHIAZIDE 12.5MG [Concomitant]
     Active Substance: HYDROCHLOROTHIAZIDE
  11. PROBIOTICS 4 BILLION [Concomitant]
  12. VITAMIN B12 [Concomitant]
     Active Substance: CYANOCOBALAMIN
  13. SELENIUM 50MG [Concomitant]
  14. SYNTHROID [Concomitant]
     Active Substance: LEVOTHYROXINE SODIUM
  15. MYRBETRIQ [Concomitant]
     Active Substance: MIRABEGRON
  16. METHYCOBALAMIN 5000 MCG [Concomitant]

REACTIONS (2)
  - Product dose omission [None]
  - Cystitis [None]

NARRATIVE: CASE EVENT DATE: 20190911
